FAERS Safety Report 9032510 (Version 2)
Quarter: 2013Q1

REPORT INFORMATION
  Report Type: Report from Study
  Country: NL (occurrence: NL)
  Receive Date: 20130125
  Receipt Date: 20130206
  Transmission Date: 20140127
  Serious: Yes (Disabling)
  Sender: FDA-Public Use
  Company Number: NL-ROCHE-1183475

PATIENT
  Age: 57 Year
  Sex: Male
  Weight: 80 kg

DRUGS (5)
  1. BEVACIZUMAB [Suspect]
     Indication: BRAIN NEOPLASM MALIGNANT
     Dosage: MOST RECENT DOSE 800 MG PRIOR TO SAE ON 28/DEC/2012
     Route: 042
     Dates: start: 20121129
  2. LOMUSTINE [Suspect]
     Indication: BRAIN NEOPLASM MALIGNANT
     Dosage: MOST RECENT DOSE 160 MG PRIOR TO SAE ON 29/NOV/2012
     Route: 048
     Dates: start: 20121129
  3. DEXA [Concomitant]
     Indication: GLIOBLASTOMA
     Route: 048
     Dates: end: 20130104
  4. DEXA [Concomitant]
     Route: 048
     Dates: start: 20130107
  5. DEXA [Concomitant]
     Route: 048
     Dates: start: 20130104, end: 20130107

REACTIONS (1)
  - Retinopathy [Not Recovered/Not Resolved]
